FAERS Safety Report 23761299 (Version 2)
Quarter: 2025Q2

REPORT INFORMATION
  Report Type: Report from Study
  Country: NL (occurrence: NL)
  Receive Date: 20240419
  Receipt Date: 20250515
  Transmission Date: 20250717
  Serious: Yes (Other)
  Sender: AUROBINDO
  Company Number: NL-UCBSA-2024015397

PATIENT
  Age: 6 Year
  Sex: Female

DRUGS (12)
  1. TOPIRAMATE [Suspect]
     Active Substance: TOPIRAMATE
     Indication: Gene mutation
     Route: 065
  2. TOPIRAMATE [Suspect]
     Active Substance: TOPIRAMATE
     Indication: Neurodevelopmental disorder
  3. TOPIRAMATE [Suspect]
     Active Substance: TOPIRAMATE
     Indication: Enzyme level decreased
  4. TOPIRAMATE [Suspect]
     Active Substance: TOPIRAMATE
     Indication: Seizure
  5. LEVETIRACETAM [Suspect]
     Active Substance: LEVETIRACETAM
     Indication: Seizure
     Route: 065
  6. LEVETIRACETAM [Suspect]
     Active Substance: LEVETIRACETAM
     Indication: Neurodevelopmental disorder
  7. LEVETIRACETAM [Suspect]
     Active Substance: LEVETIRACETAM
     Indication: Gene mutation
  8. LEVETIRACETAM [Suspect]
     Active Substance: LEVETIRACETAM
     Indication: Enzyme level decreased
  9. VIGABATRIN [Suspect]
     Active Substance: VIGABATRIN
     Indication: Neurodevelopmental disorder
     Route: 065
  10. VIGABATRIN [Suspect]
     Active Substance: VIGABATRIN
     Indication: Seizure
  11. VIGABATRIN [Suspect]
     Active Substance: VIGABATRIN
     Indication: Enzyme level decreased
  12. VIGABATRIN [Suspect]
     Active Substance: VIGABATRIN
     Indication: Gene mutation

REACTIONS (3)
  - Epilepsy [Not Recovered/Not Resolved]
  - Multiple-drug resistance [Unknown]
  - Off label use [Unknown]
